FAERS Safety Report 9011612 (Version 1)
Quarter: 2013Q1

REPORT INFORMATION
  Report Type: Spontaneous
  Country: FR (occurrence: FR)
  Receive Date: 20130108
  Receipt Date: 20130108
  Transmission Date: 20140127
  Serious: Yes (Death)
  Sender: FDA-Public Use
  Company Number: FR-ASTRAZENECA-2013SE00820

PATIENT
  Age: 30126 Day
  Sex: Male

DRUGS (3)
  1. BRILIQUE [Suspect]
     Indication: ACUTE CORONARY SYNDROME
     Route: 048
     Dates: start: 20121211
  2. ANGIOX [Suspect]
     Indication: ACUTE CORONARY SYNDROME
     Route: 042
     Dates: start: 20121211
  3. ASPEGIC [Suspect]
     Indication: ACUTE CORONARY SYNDROME
     Route: 048
     Dates: start: 20121211

REACTIONS (2)
  - Pulmonary haemorrhage [Fatal]
  - Shock haemorrhagic [Fatal]
